FAERS Safety Report 9121396 (Version 6)
Quarter: 2013Q4

REPORT INFORMATION
  Report Type: Spontaneous
  Country: US (occurrence: US)
  Receive Date: 20130225
  Receipt Date: 20131107
  Transmission Date: 20140711
  Serious: Yes (Hospitalization, Other)
  Sender: FDA-Public Use
  Company Number: US-009507513-1302USA010408

PATIENT
  Sex: Female
  Weight: 52.15 kg

DRUGS (17)
  1. FOSAMAX [Suspect]
     Indication: OSTEOPOROSIS
     Dosage: 10 MG, QD
     Route: 048
     Dates: end: 2001
  2. FOSAMAX [Suspect]
     Indication: OSTEOPENIA
     Dosage: 10 MG, QD
     Route: 048
     Dates: start: 200109, end: 2002
  3. FOSAMAX [Suspect]
     Dosage: 70 MG, QW
     Route: 048
     Dates: start: 200209, end: 20110324
  4. ALENDRONATE SODIUM [Suspect]
     Indication: OSTEOPOROSIS
     Dosage: 70 MG, QW
     Route: 048
  5. HUMULIN [Concomitant]
     Indication: INSULIN-REQUIRING TYPE 2 DIABETES MELLITUS
     Dosage: UNK
     Dates: start: 1990
  6. GLUCOTROL [Concomitant]
     Indication: TYPE 2 DIABETES MELLITUS
     Dosage: 10 MG, BID
  7. GLUCOPHAGE [Concomitant]
     Indication: TYPE 2 DIABETES MELLITUS
     Dosage: 1000 MG, BID
  8. AVANDIA [Concomitant]
     Indication: TYPE 2 DIABETES MELLITUS
     Dosage: 8 MG, QD
  9. INSULIN, BIPHASIC ISOPHANE [INJECTION] [Concomitant]
     Indication: INSULIN-REQUIRING TYPE 2 DIABETES MELLITUS
     Dosage: 14U AM/ 12 U PM
     Route: 058
  10. INSULIN, BIPHASIC ISOPHANE [INJECTION] [Concomitant]
     Dosage: 20U AM/ 16U PM
  11. INFLUENZA VIRUS VACCINE (UNSPECIFIED) [Concomitant]
     Dosage: UNK
     Dates: start: 200710
  12. PNEUMOVAX (PNEUMOCOCCAL 14V POLYSACCHARIDE VACCINE) [Concomitant]
     Dosage: UNK
     Dates: start: 200710
  13. CALCIUM (UNSPECIFIED) [Concomitant]
     Indication: OSTEOPENIA
  14. INSULIN R (INSULIN) [Concomitant]
     Indication: INSULIN-REQUIRING TYPE 2 DIABETES MELLITUS
     Dosage: 7-8U AM/ 13-37U PM
     Route: 058
  15. INSULIN R (INSULIN) [Concomitant]
     Dosage: SLIDING SCALE
     Route: 058
  16. INSULIN, ISOPHANE [Concomitant]
     Indication: INSULIN-REQUIRING TYPE 2 DIABETES MELLITUS
     Dosage: 22-32U AM/ 19-35U HS
     Route: 058
  17. VITAMIN D (UNSPECIFIED) [Concomitant]
     Indication: OSTEOPOROSIS
     Dosage: 2000 IU, QD
     Dates: start: 20080724

REACTIONS (52)
  - Femur fracture [Recovered/Resolved]
  - Intramedullary rod insertion [Unknown]
  - Femur fracture [Recovered/Resolved]
  - Internal fixation of fracture [Unknown]
  - Tibia fracture [Unknown]
  - Renal failure chronic [Not Recovered/Not Resolved]
  - Femur fracture [Recovering/Resolving]
  - Surgery [Recovering/Resolving]
  - Colectomy [Unknown]
  - Breast cancer [Unknown]
  - Mastectomy [Unknown]
  - Ankle fracture [Unknown]
  - Pubis fracture [Unknown]
  - Vitamin D deficiency [Recovering/Resolving]
  - Low turnover osteopathy [Unknown]
  - Hypertension [Unknown]
  - Dyslipidaemia [Unknown]
  - Osteoarthritis [Unknown]
  - Tendonitis [Unknown]
  - Intestinal polyp [Unknown]
  - Hysterectomy [Unknown]
  - Vaginoperineorrhaphy [Unknown]
  - Prolapse repair [Unknown]
  - Vertebral osteophyte [Unknown]
  - Ankle operation [Unknown]
  - Dehydration [Unknown]
  - Blood triglycerides abnormal [Unknown]
  - Rib fracture [Unknown]
  - Type 1 diabetes mellitus [Unknown]
  - Glaucoma [Unknown]
  - Cystocele repair [Unknown]
  - Cataract [Unknown]
  - Cataract operation [Unknown]
  - Diabetes mellitus inadequate control [Unknown]
  - Diabetic nephropathy [Unknown]
  - Diabetic neuropathy [Unknown]
  - Hyperkeratosis [Unknown]
  - Carpal tunnel syndrome [Unknown]
  - Anaemia [Unknown]
  - Bronchial hyperreactivity [Unknown]
  - Colitis ulcerative [Unknown]
  - Oophorectomy [Unknown]
  - Urinary tract infection [Unknown]
  - Hypokalaemia [Unknown]
  - Fatigue [Unknown]
  - Syncope [Unknown]
  - Diabetic eye disease [Unknown]
  - Asthenia [Unknown]
  - Headache [Unknown]
  - Dizziness [Unknown]
  - Nausea [Unknown]
  - Hypercholesterolaemia [Unknown]
